FAERS Safety Report 4359502-9 (Version None)
Quarter: 2004Q2

REPORT INFORMATION
  Report Type: 
  Country: None (occurrence: None)
  Receive Date: 20040512
  Receipt Date: 20040428
  Transmission Date: 20050107
  Serious: Yes (Disabling, Other)
  Sender: FDA-Public Use
  Company Number: USA040259422

PATIENT
  Age: 75 Year
  Sex: Female

DRUGS (16)
  1. FORTEO [Suspect]
     Indication: OSTEOPENIA
     Dosage: 20 UG/1 DAY
     Dates: start: 20040205
  2. FORTEO [Suspect]
     Indication: OSTEOPOROSIS
     Dosage: 20 UG/1 DAY
     Dates: start: 20040205
  3. TRIAMTERENE AND HYDROCHLOROTHIAZIDE [Concomitant]
  4. ULTRACET [Concomitant]
  5. SKELAXIN [Concomitant]
  6. CALCIUM [Concomitant]
  7. VITAMIN D [Concomitant]
  8. VITAMIN B COMPLEX CAP [Concomitant]
  9. COPPER [Concomitant]
  10. MAGNESIUM [Concomitant]
  11. MANGANESE [Concomitant]
  12. ZINC [Concomitant]
  13. CHROMIUM [Concomitant]
  14. VITAMIN E [Concomitant]
  15. EVENING PRIMPROSE OIL [Concomitant]
  16. FISH OIL [Concomitant]

REACTIONS (16)
  - ANAL DISCOMFORT [None]
  - ARTHRITIS [None]
  - BACK PAIN [None]
  - DISABILITY [None]
  - INJECTION SITE ERYTHEMA [None]
  - INJECTION SITE PAIN [None]
  - INJECTION SITE REACTION [None]
  - INJECTION SITE STINGING [None]
  - INJECTION SITE SWELLING [None]
  - JOINT SPRAIN [None]
  - MUSCLE CRAMP [None]
  - PAIN [None]
  - PAIN IN EXTREMITY [None]
  - PHARMACEUTICAL PRODUCT COMPLAINT [None]
  - SCAN BONE MARROW ABNORMAL [None]
  - SWELLING [None]
